FAERS Safety Report 5032797-4 (Version None)
Quarter: 2006Q2

REPORT INFORMATION
  Report Type: 
  Country: None (occurrence: None)
  Receive Date: 20060515
  Receipt Date: 20060306
  Transmission Date: 20061013
  Serious: No
  Sender: FDA-Public Use
  Company Number: S06-USA-00747-01

PATIENT
  Age: 76 Year
  Sex: Female

DRUGS (4)
  1. NAMENDA [Suspect]
     Indication: DEMENTIA ALZHEIMER'S TYPE
     Dosage: 10 MG BID PO
     Route: 048
     Dates: start: 20040301, end: 20060302
  2. NAMENDA [Suspect]
     Indication: DEMENTIA ALZHEIMER'S TYPE
     Dosage: 5 MG BID PO
     Route: 048
     Dates: start: 20060303
  3. CARBIDOPA AND LEVODOPA [Concomitant]
  4. MULTIPLE MEDICATIONS [Concomitant]

REACTIONS (3)
  - CONFUSIONAL STATE [None]
  - DELUSION [None]
  - HALLUCINATION, VISUAL [None]
